FAERS Safety Report 4572201-3 (Version None)
Quarter: 2005Q1

REPORT INFORMATION
  Report Type: 
  Country: None (occurrence: None)
  Receive Date: 20050128
  Receipt Date: 20050103
  Transmission Date: 20050727
  Serious: Yes (Other)
  Sender: FDA-Public Use
  Company Number: D01200500030

PATIENT
  Age: 55 Year
  Sex: Male
  Weight: 77.7 kg

DRUGS (8)
  1. RASBURICASE - SOLUTION - 0.2 MG/KG [Suspect]
     Indication: HYPERURICAEMIA
     Dosage: 0.2 MG/KG QD - INTRAVENOUSNOS
     Route: 042
     Dates: start: 20041229, end: 20041230
  2. RASBURICASE - SOLUTION - 0.2 MG/KG [Suspect]
     Indication: LEUKAEMIA
     Dosage: 0.2 MG/KG QD - INTRAVENOUSNOS
     Route: 042
     Dates: start: 20041229, end: 20041230
  3. RASBURICASE - SOLUTION - 0.2 MG/KG [Suspect]
     Indication: NEOPLASM MALIGNANT
     Dosage: 0.2 MG/KG QD - INTRAVENOUSNOS
     Route: 042
     Dates: start: 20041229, end: 20041230
  4. CYTARABINE [Concomitant]
  5. IDARUBICIN HCL [Concomitant]
  6. VALSARTAN [Concomitant]
  7. GRANISETRON [Concomitant]
  8. DEXAMETHASONE [Concomitant]

REACTIONS (2)
  - HAEMOLYSIS [None]
  - HYPERBILIRUBINAEMIA [None]
